FAERS Safety Report 7146053-1 (Version None)
Quarter: 2010Q4

REPORT INFORMATION
  Report Type: 
  Country: None (occurrence: None)
  Receive Date: 20101208
  Receipt Date: 20101008
  Transmission Date: 20110411
  Serious: No
  Sender: FDA-Public Use
  Company Number: US-BAYER-201022400BCC

PATIENT
  Sex: Male
  Weight: 103.64 kg

DRUGS (1)
  1. ALEVE (CAPLET) [Suspect]
     Indication: ARTHRALGIA
     Dosage: DAILY DOSE 660 MG
     Route: 048
     Dates: start: 20100929, end: 20101007

REACTIONS (1)
  - ARTHRALGIA [None]
